FAERS Safety Report 10144609 (Version 1)
Quarter: 2014Q2

REPORT INFORMATION
  Report Type: Spontaneous
  Country: US (occurrence: US)
  Receive Date: 20140430
  Receipt Date: 20140430
  Transmission Date: 20141212
  Serious: Yes (Other)
  Sender: FDA-Public Use
  Company Number: US-SANOFI-AVENTIS-2013SA047956

PATIENT
  Age: 23 Year
  Sex: Female
  Weight: 68 kg

DRUGS (3)
  1. ENOXAPARIN SODIUM - WINTHROP [Suspect]
     Indication: PROPHYLAXIS
     Dosage: THERAPY START DATE - ABOUT 2 WEEKS AGO
     Dates: start: 20130422, end: 20130508
  2. ENOXAPARIN SODIUM - WINTHROP [Suspect]
     Indication: PROPHYLAXIS
     Dosage: THERAPY START DATE - ABOUT 2 WEEKS AGO
     Dates: start: 20130422, end: 20130508
  3. NORCO [Concomitant]
     Indication: PAIN

REACTIONS (1)
  - Hepatic enzyme increased [Recovered/Resolved]
